FAERS Safety Report 14826773 (Version 9)
Quarter: 2020Q3

REPORT INFORMATION
  Report Type: Spontaneous
  Country: PT (occurrence: PT)
  Receive Date: 20180430
  Receipt Date: 20200703
  Transmission Date: 20201102
  Serious: Yes (Hospitalization, Other)
  Sender: FDA-Public Use
  Company Number: PT-AUROBINDO-AUR-APL-2018-022629

PATIENT
  Age: 57 Year
  Sex: Male

DRUGS (13)
  1. ERYTHROMYCIN. [Suspect]
     Active Substance: ERYTHROMYCIN
     Indication: ANTIBIOTIC PROPHYLAXIS
     Dosage: 1000 MILLIGRAM
     Route: 065
  2. ISOSORBIDE DINITRATE. [Suspect]
     Active Substance: ISOSORBIDE DINITRATE
     Indication: PRODUCT USED FOR UNKNOWN INDICATION
     Dosage: 1?2 MG/H
     Route: 042
  3. PARACETAMOL [Suspect]
     Active Substance: ACETAMINOPHEN
     Indication: PRODUCT USED FOR UNKNOWN INDICATION
     Dosage: 1000 MILLIGRAM, IN TOTAL
     Route: 065
  4. METOCLOPRAMIDE 10 MG [Suspect]
     Active Substance: METOCLOPRAMIDE
     Indication: PREMEDICATION
     Dosage: 10 MILLIGRAM
     Route: 065
  5. PROPOFOL. [Suspect]
     Active Substance: PROPOFOL
     Indication: ANAESTHESIA
     Dosage: 200 MILLIGRAM, (100 UG, UNK,PERFUSION 100?200 MCG/KG/MIN)
     Route: 042
  6. SUGAMMADEX [Suspect]
     Active Substance: SUGAMMADEX
     Indication: GENERAL ANAESTHESIA
     Dosage: 200 MILLIGRAM, (200 MILLIGRAM, TOTAL, 1WEEK)
     Route: 065
  7. REMIFENTANIL POWDER FOR CONCENTRATE FOR SOLUTION FOR INFUSION [Suspect]
     Active Substance: REMIFENTANIL
     Indication: ANAESTHESIA
     Dosage: 0.2 MICROGRAM, (0.2 UG, UNK,0.2 MCG/KG/MIN )
     Route: 042
  8. REMIFENTANIL POWDER FOR CONCENTRATE FOR SOLUTION FOR INFUSION [Suspect]
     Active Substance: REMIFENTANIL
     Indication: MAINTENANCE OF ANAESTHESIA
     Dosage: 100?500 MCG/KG/MIN
     Route: 065
  9. DROPERIDOL. [Suspect]
     Active Substance: DROPERIDOL
     Indication: PRODUCT USED FOR UNKNOWN INDICATION
     Dosage: 1 MILLIGRAM/1.25 MILLIGRAM
     Route: 065
  10. ROCURONIUM [Suspect]
     Active Substance: ROCURONIUM BROMIDE
     Indication: ANAESTHESIA
     Dosage: 50 MILLIGRAM
     Route: 065
  11. MIDAZOLAM. [Suspect]
     Active Substance: MIDAZOLAM
     Indication: PREMEDICATION
     Dosage: 2 MILLIGRAM
     Route: 065
  12. DROPERIDOL. [Suspect]
     Active Substance: DROPERIDOL
     Dosage: 1.25 MILLIGRAM
     Route: 065
  13. RANITIDINE. [Suspect]
     Active Substance: RANITIDINE
     Indication: PREMEDICATION
     Dosage: 50 MILLIGRAM
     Route: 042

REACTIONS (7)
  - Anaphylactic reaction [Recovered/Resolved]
  - Tachycardia [Recovered/Resolved]
  - Malaise [Recovered/Resolved]
  - Hyperhidrosis [Recovered/Resolved]
  - Hypertension [Recovered/Resolved]
  - Epistaxis [Recovered/Resolved]
  - Kounis syndrome [Recovered/Resolved]
